FAERS Safety Report 8368521-7 (Version None)
Quarter: 2012Q2

REPORT INFORMATION
  Report Type: 
  Country: None (occurrence: None)
  Receive Date: 20120518
  Receipt Date: 20120508
  Transmission Date: 20120825
  Serious: Yes (Other)
  Sender: FDA-Public Use
  Company Number: BR-BIOGENIDEC-2011BI019375

PATIENT
  Age: 28 Year
  Sex: Female
  Weight: 68 kg

DRUGS (3)
  1. FOLIC ACID [Concomitant]
     Indication: PREGNANCY
     Dates: start: 20110101, end: 20110101
  2. SYNTHROID [Concomitant]
     Indication: AUTOIMMUNE THYROIDITIS
  3. AVONEX [Suspect]
     Indication: PRODUCT USED FOR UNKNOWN INDICATION
     Route: 030
     Dates: start: 20071001, end: 20110509

REACTIONS (1)
  - PREMATURE SEPARATION OF PLACENTA [None]
